FAERS Safety Report 14659410 (Version 1)
Quarter: 2018Q1

REPORT INFORMATION
  Report Type: Spontaneous
  Country: US (occurrence: US)
  Receive Date: 20180320
  Receipt Date: 20180320
  Transmission Date: 20180509
  Serious: Yes (Disabling, Other)
  Sender: FDA-Public Use
  Company Number: US-REGENERON PHARMACEUTICALS, INC.-2018-13089

PATIENT

DRUGS (2)
  1. EYLEA [Suspect]
     Active Substance: AFLIBERCEPT
     Dosage: 2 MG, EVERY 3 MONTHS, OD, LAST DOSE
     Route: 031
     Dates: start: 20180112, end: 20180112
  2. EYLEA [Suspect]
     Active Substance: AFLIBERCEPT
     Indication: NEOVASCULAR AGE-RELATED MACULAR DEGENERATION
     Dosage: 2 MG, EVERY 3 MONTHS, OD
     Route: 031
     Dates: start: 20121019

REACTIONS (6)
  - Ocular discomfort [Recovered/Resolved]
  - Blindness transient [Recovering/Resolving]
  - Intraocular pressure decreased [Recovered/Resolved]
  - Anterior chamber cell [Recovered/Resolved]
  - Vitreous floaters [Not Recovered/Not Resolved]
  - Non-infectious endophthalmitis [Recovered/Resolved]

NARRATIVE: CASE EVENT DATE: 20180112
